FAERS Safety Report 9278116 (Version 2)
Quarter: 2013Q2

REPORT INFORMATION
  Report Type: Spontaneous
  Country: DE (occurrence: DE)
  Receive Date: 20130508
  Receipt Date: 20130619
  Transmission Date: 20140414
  Serious: Yes (Death, Other)
  Sender: FDA-Public Use
  Company Number: DE-ROCHE-CID000000002412413

PATIENT
  Age: 51 Year
  Sex: Male
  Weight: 80 kg

DRUGS (3)
  1. PEGASYS [Suspect]
     Indication: HEPATITIS C
     Route: 058
     Dates: start: 20130313, end: 20130325
  2. COPEGUS [Suspect]
     Indication: HEPATITIS C
     Route: 048
     Dates: start: 20130313, end: 20130325
  3. ALLERGOSPASMIN [Concomitant]
     Indication: ASTHMA
     Dosage: AS REQUIRED
     Route: 065

REACTIONS (6)
  - Septic shock [Fatal]
  - Multi-organ failure [Fatal]
  - Neutropenia [Unknown]
  - Neutropenic colitis [Unknown]
  - Peritonitis bacterial [Unknown]
  - Pneumonia [Unknown]
